FAERS Safety Report 7636387-6 (Version None)
Quarter: 2011Q3

REPORT INFORMATION
  Report Type: 
  Country: None (occurrence: None)
  Receive Date: 20110726
  Receipt Date: 20110719
  Transmission Date: 20111222
  Serious: Yes (Other)
  Sender: FDA-Public Use
  Company Number: GB-GLAXOSMITHKLINE-B0735080A

PATIENT
  Sex: Male

DRUGS (1)
  1. CLOBETASOL PROPIONATE [Suspect]
     Indication: DERMATITIS ATOPIC
     Route: 065

REACTIONS (3)
  - GLAUCOMA [None]
  - EYE DISORDER [None]
  - BLINDNESS [None]
